FAERS Safety Report 5397873-5 (Version None)
Quarter: 2007Q3

REPORT INFORMATION
  Report Type: 
  Country: None (occurrence: None)
  Receive Date: 20070723
  Receipt Date: 20070723
  Transmission Date: 20080115
  Serious: No
  Sender: FDA-Public Use
  Company Number: None

PATIENT
  Age: 73 Year
  Sex: Female
  Weight: 61.2356 kg

DRUGS (1)
  1. METOCLOPRAMIDE 10MG/2ML SICOR [Suspect]
     Indication: VOMITING
     Dosage: 10MG X1 IV
     Route: 042
     Dates: start: 20070602, end: 20070602

REACTIONS (4)
  - BLOOD PRESSURE SYSTOLIC INCREASED [None]
  - DYSTONIA [None]
  - GASTRITIS [None]
  - PANCREATITIS [None]
